FAERS Safety Report 7314432-5 (Version None)
Quarter: 2011Q1

REPORT INFORMATION
  Report Type: 
  Country: None (occurrence: None)
  Receive Date: 20110225
  Receipt Date: 20100913
  Transmission Date: 20110831
  Serious: No
  Sender: FDA-Public Use
  Company Number: US-MYLANLABS-2010S1015213

PATIENT
  Age: 15 Year
  Sex: Female

DRUGS (3)
  1. AMNESTEEM [Suspect]
     Indication: ACNE CYSTIC
     Route: 048
     Dates: start: 20100325, end: 20100818
  2. LOESTRIN 1.5/30 [Concomitant]
     Dates: start: 20090101
  3. AMNESTEEM [Suspect]
     Indication: ACNE
     Route: 048
     Dates: start: 20100602, end: 20100818

REACTIONS (2)
  - AGGRESSION [None]
  - MOOD ALTERED [None]
